FAERS Safety Report 14809341 (Version 2)
Quarter: 2018Q3

REPORT INFORMATION
  Report Type: Report from Study
  Country: US (occurrence: US)
  Receive Date: 20180425
  Receipt Date: 20180719
  Transmission Date: 20181010
  Serious: No
  Sender: FDA-Public Use
  Company Number: US-AMGEN-USASL2018029432

PATIENT
  Age: 44 Year
  Sex: Male

DRUGS (4)
  1. REPATHA [Suspect]
     Active Substance: EVOLOCUMAB
     Indication: ESSENTIAL HYPERTENSION
  2. REPATHA [Suspect]
     Active Substance: EVOLOCUMAB
     Indication: ARTERIOSCLEROSIS
  3. REPATHA [Suspect]
     Active Substance: EVOLOCUMAB
     Indication: VITAMIN D DEFICIENCY
     Dosage: 140 MG, Q2WK
     Route: 065
  4. REPATHA [Suspect]
     Active Substance: EVOLOCUMAB
     Indication: TYPE IIA HYPERLIPIDAEMIA

REACTIONS (2)
  - Off label use [Unknown]
  - Hypertension [Unknown]
